FAERS Safety Report 9018408 (Version 1)
Quarter: 2013Q1

REPORT INFORMATION
  Report Type: Spontaneous
  Country: US (occurrence: None)
  Receive Date: 20130111
  Receipt Date: 20130111
  Transmission Date: 20140127
  Serious: Yes (Other)
  Sender: FDA-Public Use
  Company Number: None

PATIENT
  Sex: Female
  Weight: 116.12 kg

DRUGS (1)
  1. HUMALOG KWIKPEN [Suspect]
     Dosage: 15U TID SQ
     Route: 058

REACTIONS (2)
  - Injection site pain [None]
  - Feeling abnormal [None]
